FAERS Safety Report 22210278 (Version 3)
Quarter: 2023Q2

REPORT INFORMATION
  Report Type: Spontaneous
  Country: PT (occurrence: PT)
  Receive Date: 20230414
  Receipt Date: 20230430
  Transmission Date: 20230721
  Serious: Yes (Death, Hospitalization, Other)
  Sender: FDA-Public Use
  Company Number: PT-AUROBINDO-AUR-APL-2023-030135

PATIENT
  Age: 76 Year
  Sex: Male

DRUGS (1)
  1. VORICONAZOLE [Suspect]
     Active Substance: VORICONAZOLE
     Indication: Antifungal treatment
     Dosage: UNK
     Route: 065

REACTIONS (8)
  - Cardiovascular disorder [Fatal]
  - Neurotoxicity [Unknown]
  - Hallucination, visual [Unknown]
  - Respiratory failure [Unknown]
  - Disorientation [Unknown]
  - Agitation [Unknown]
  - Pyrexia [Unknown]
  - Bronchospasm [Unknown]
